FAERS Safety Report 13327334 (Version 2)
Quarter: 2017Q2

REPORT INFORMATION
  Report Type: Spontaneous
  Country: US (occurrence: US)
  Receive Date: 20170313
  Receipt Date: 20170516
  Transmission Date: 20170830
  Serious: No
  Sender: FDA-Public Use
  Company Number: US-JNJFOC-20161219084

PATIENT
  Age: 73 Year
  Sex: Female
  Weight: 58.97 kg

DRUGS (5)
  1. NEURONTIN [Concomitant]
     Active Substance: GABAPENTIN
     Indication: NEURALGIA
     Route: 065
  2. WOMENS ROGAINE UNSCENTED [Suspect]
     Active Substance: MINOXIDIL
     Route: 061
  3. CELEBREX [Concomitant]
     Active Substance: CELECOXIB
     Indication: ARTHRITIS
     Dosage: SEVERAL YEARS, EVERY 3RD DAY
     Route: 065
  4. WOMENS ROGAINE UNSCENTED [Suspect]
     Active Substance: MINOXIDIL
     Indication: PRODUCT USED FOR UNKNOWN INDICATION
     Dosage: 3/4 CAPFUL
     Route: 061
     Dates: start: 20161126
  5. TRILEPTAL [Concomitant]
     Active Substance: OXCARBAZEPINE
     Indication: NEURALGIA
     Route: 065

REACTIONS (4)
  - Overdose [Recovered/Resolved]
  - Application site pain [Recovered/Resolved]
  - Neuralgia [Unknown]
  - Drug administration error [Recovered/Resolved]

NARRATIVE: CASE EVENT DATE: 20161126
